FAERS Safety Report 9843219 (Version 1)
Quarter: 2013Q4

REPORT INFORMATION
  Report Type: Spontaneous
  Country: US (occurrence: None)
  Receive Date: 20131219
  Receipt Date: 20131219
  Transmission Date: 20140711
  Serious: Yes (Disabling)
  Sender: FDA-Public Use
  Company Number: 163-20785-13023186

PATIENT
  Age: 57 Year
  Sex: Male

DRUGS (4)
  1. THALOMID (THALIDOMIDE) (CAPSULES) [Suspect]
     Indication: PLASMA CELL MYELOMA
     Route: 048
     Dates: start: 20130122, end: 20130212
  2. VELCADE(BORTEZOMIB)(INJECTION) [Concomitant]
  3. CYTOXAN(CYCLOPHOSPHAMIDE) (INJECTION) [Concomitant]
  4. DEXAMETHASONE(DEXAMETHASONE) (INJECTION) [Concomitant]

REACTIONS (1)
  - Hypersensitivity [None]
